FAERS Safety Report 4543480-3 (Version None)
Quarter: 2005Q1

REPORT INFORMATION
  Report Type: 
  Country: None (occurrence: None)
  Receive Date: 20050103
  Receipt Date: 20041223
  Transmission Date: 20050727
  Serious: Yes (Death, Hospitalization)
  Sender: FDA-Public Use
  Company Number: US-GLAXOSMITHKLINE-A0538423A

PATIENT
  Sex: Male

DRUGS (1)
  1. CITRUCEL REGULAR SUSPENSION [Suspect]
     Indication: CONSTIPATION
     Route: 048
     Dates: start: 20000101

REACTIONS (4)
  - COLLAPSE OF LUNG [None]
  - COUGH [None]
  - PNEUMONIA [None]
  - PYREXIA [None]
